FAERS Safety Report 15696222 (Version 1)
Quarter: 2018Q4

REPORT INFORMATION
  Report Type: Spontaneous
  Country: GB (occurrence: GB)
  Receive Date: 20181206
  Receipt Date: 20181206
  Transmission Date: 20190205
  Serious: Yes (Hospitalization)
  Sender: FDA-Public Use
  Company Number: GB-MYLANLABS-2018M1089804

PATIENT
  Age: 70 Year
  Sex: Male

DRUGS (1)
  1. INDAPAMIDE. [Suspect]
     Active Substance: INDAPAMIDE
     Indication: HYPERTENSION
     Dosage: STARTED 3 WEEKS BEFORE THE ONSET OF SYMPTOMS.
     Route: 065

REACTIONS (1)
  - Choroidal effusion [Recovered/Resolved]
